FAERS Safety Report 5305780-9 (Version None)
Quarter: 2007Q2

REPORT INFORMATION
  Report Type: 
  Country: None (occurrence: None)
  Receive Date: 20070424
  Receipt Date: 20070413
  Transmission Date: 20071010
  Serious: Yes (Death, Hospitalization, Other)
  Sender: FDA-Public Use
  Company Number: US-ELI_LILLY_AND_COMPANY-US200704003119

PATIENT
  Age: 68 Year
  Sex: Female
  Weight: 73 kg

DRUGS (25)
  1. ZYPREXA [Suspect]
     Dosage: 7.5 MG, EACH EVENING
     Route: 048
  2. ZYPREXA [Suspect]
     Dosage: 5 MG, DAILY (1/D)
     Route: 048
  3. PROZAC [Suspect]
     Dosage: 20 MG, 2/D
     Route: 048
  4. CILOSTAZOL [Concomitant]
     Dosage: 100 MG, 2/D
     Route: 048
  5. ORLISTAT [Concomitant]
     Dosage: 120 MG, 3/D
     Route: 048
  6. MULTIVITAMINS PLUS IRON [Concomitant]
  7. VITAMIN B COMPLEX CAP [Concomitant]
  8. NEFAZODONE HCL [Concomitant]
     Dosage: 100 MG, EACH EVENING
     Route: 048
  9. ATORVASTATIN CALCIUM [Concomitant]
     Dosage: 200 MG, DAILY (1/D)
     Route: 048
  10. OMEGA 3 [Concomitant]
  11. DIPHENHYDRAMINE HCL [Concomitant]
     Dosage: UNK, AS NEEDED
  12. LEVOTHYROXINE SODIUM [Concomitant]
     Dosage: 100 U, DAILY (1/D)
     Route: 048
  13. OXYBUTYNIN CHLORIDE [Concomitant]
     Dosage: 20 MG, DAILY (1/D)
     Route: 048
  14. OXYBUTYNIN CHLORIDE [Concomitant]
     Dosage: 10 MG, 2/D
     Route: 048
  15. VITAMIN E [Concomitant]
  16. ASPIRIN [Concomitant]
     Dosage: 81 MG, DAILY (1/D)
     Route: 048
  17. GARLIC [Concomitant]
  18. TRAZODONE HCL [Concomitant]
     Dosage: 50 MG, EACH EVENING
     Route: 048
  19. CALCIUM ACETATE [Concomitant]
     Dosage: 2001 MG, 3/D
     Route: 048
  20. METFORMIN HCL [Concomitant]
     Indication: DIABETES MELLITUS NON-INSULIN-DEPENDENT
     Dosage: 1000 MG, 2/D
     Route: 048
  21. DIOVAN [Concomitant]
     Dosage: UNK, DAILY (1/D)
     Route: 048
  22. BYETTA [Concomitant]
     Indication: DIABETES MELLITUS NON-INSULIN-DEPENDENT
     Dosage: 10 U, 2/D
     Dates: start: 20060101
  23. REGULAR INSULIN [Concomitant]
     Indication: DIABETES MELLITUS NON-INSULIN-DEPENDENT
  24. INSULIN SUSPENSION, NPH [Concomitant]
     Indication: DIABETES MELLITUS NON-INSULIN-DEPENDENT
  25. FLURBIPROFEN [Concomitant]
     Dosage: 100 MG, 2/D
     Route: 048

REACTIONS (11)
  - CARDIAC FAILURE [None]
  - CEREBROVASCULAR ACCIDENT [None]
  - COORDINATION ABNORMAL [None]
  - DECREASED APPETITE [None]
  - FALL [None]
  - LETHARGY [None]
  - NAUSEA [None]
  - RESPIRATORY TRACT INFECTION [None]
  - RHABDOMYOLYSIS [None]
  - SEPSIS [None]
  - SEPTIC SHOCK [None]
